FAERS Safety Report 7214558-0 (Version None)
Quarter: 2011Q1

REPORT INFORMATION
  Report Type: 
  Country: None (occurrence: None)
  Receive Date: 20110107
  Receipt Date: 20101229
  Transmission Date: 20110831
  Serious: Yes (Hospitalization)
  Sender: FDA-Public Use
  Company Number: DE-NAPPMUNDI-DEU-2010-0006840

PATIENT
  Age: 75 Year
  Sex: Male

DRUGS (10)
  1. PALLADONE [Suspect]
     Indication: CANCER PAIN
     Dosage: 4 MG, BID
     Route: 048
     Dates: start: 20101117
  2. PANTOZOL                           /01263202/ [Concomitant]
  3. BERLOSIN [Concomitant]
  4. PALLADONE [Suspect]
     Dosage: 4 MG, TID
     Route: 048
     Dates: start: 20101110, end: 20101116
  5. DIGITOXIN [Concomitant]
  6. DEXAMETHASONE [Concomitant]
  7. LAXOBERAL [Concomitant]
  8. ASPIRIN [Concomitant]
  9. DOMPERIDON                         /00498201/ [Concomitant]
  10. PALLADONE [Suspect]
     Indication: CANCER PAIN
     Dosage: 1.3 MG, PRN
     Route: 048
     Dates: start: 20101110

REACTIONS (1)
  - FAECALOMA [None]
